FAERS Safety Report 18791623 (Version 2)
Quarter: 2021Q1

REPORT INFORMATION
  Report Type: Spontaneous
  Country: US (occurrence: US)
  Receive Date: 20210127
  Receipt Date: 20210202
  Transmission Date: 20210419
  Serious: No
  Sender: FDA-Public Use
  Company Number: US-ASTRAZENECA-2021A008997

PATIENT
  Age: 24415 Day
  Sex: Male

DRUGS (2)
  1. TRULICITY [Concomitant]
     Active Substance: DULAGLUTIDE
     Indication: TYPE 2 DIABETES MELLITUS
     Route: 065
  2. BYDUREON BCISE [Suspect]
     Active Substance: EXENATIDE
     Indication: TYPE 2 DIABETES MELLITUS
     Route: 058
     Dates: start: 20210106

REACTIONS (4)
  - Incorrect dose administered by device [Unknown]
  - Intentional device misuse [Unknown]
  - Injection site pain [Unknown]
  - Device leakage [Unknown]

NARRATIVE: CASE EVENT DATE: 20210113
